FAERS Safety Report 18162314 (Version 1)
Quarter: 2020Q3

REPORT INFORMATION
  Report Type: Spontaneous
  Country: CA (occurrence: CA)
  Receive Date: 20200818
  Receipt Date: 20200818
  Transmission Date: 20201103
  Serious: Yes (Hospitalization)
  Sender: FDA-Public Use
  Company Number: CA-ACCORD-195412

PATIENT
  Age: 66 Year
  Sex: Male

DRUGS (14)
  1. IRINOTECAN [Suspect]
     Active Substance: IRINOTECAN
     Indication: COLON CANCER
     Route: 042
  2. OXAZEPAM. [Concomitant]
     Active Substance: OXAZEPAM
  3. METFORMIN/SITAGLIPTIN [Concomitant]
     Active Substance: METFORMIN\SITAGLIPTIN
  4. AMLODIPINE [Concomitant]
     Active Substance: AMLODIPINE BESYLATE
  5. TYLENOL [Concomitant]
     Active Substance: ACETAMINOPHEN
  6. FENOFIBRATE. [Concomitant]
     Active Substance: FENOFIBRATE
  7. IRON [Concomitant]
     Active Substance: IRON
  8. APIXABAN [Concomitant]
     Active Substance: APIXABAN
  9. FLUOROURACIL. [Suspect]
     Active Substance: FLUOROURACIL
     Indication: COLON CANCER
     Route: 042
  10. SALBUTAMOL [Concomitant]
     Active Substance: ALBUTEROL
  11. GLICLAZIDE [Concomitant]
     Active Substance: GLICLAZIDE
  12. CANDESARTAN. [Concomitant]
     Active Substance: CANDESARTAN
  13. HYDROMORPHONE/HYDROMORPHONE HYDROCHLORIDE [Concomitant]
     Active Substance: HYDROMORPHONE
  14. FLUTICASONE PROPIONATE/SALMETEROL XINAFOATE [Concomitant]
     Active Substance: FLUTICASONE PROPIONATE\SALMETEROL XINAFOATE

REACTIONS (2)
  - Acute kidney injury [Unknown]
  - Diarrhoea [Unknown]
